FAERS Safety Report 7215574-5 (Version None)
Quarter: 2011Q1

REPORT INFORMATION
  Report Type: 
  Country: None (occurrence: None)
  Receive Date: 20110107
  Receipt Date: 20101230
  Transmission Date: 20110831
  Serious: Yes (Other)
  Sender: FDA-Public Use
  Company Number: US-ROCHE-751572

PATIENT
  Sex: Female
  Weight: 81.6 kg

DRUGS (4)
  1. RIFAMPIN [Concomitant]
  2. PYRAZINAMIDE [Concomitant]
  3. ISONIAZID [Concomitant]
  4. TAMIFLU [Suspect]
     Indication: INFLUENZA
     Route: 048
     Dates: start: 20101224, end: 20101226

REACTIONS (2)
  - ELECTROCARDIOGRAM QT PROLONGED [None]
  - RESTLESS LEGS SYNDROME [None]
